FAERS Safety Report 6112402 (Version 2)
Quarter: 2013Q4

REPORT INFORMATION
  Report Type: Spontaneous
  Country: US (occurrence: US)
  Receive Date: 20060601
  Receipt Date: 20131126
  Transmission Date: 20140711
  Serious: No
  Sender: FDA-Public Use
  Company Number: 2006PV010148

PATIENT
  Age: 57 Year
  Sex: Male
  Weight: 120.2 kg

DRUGS (2)
  1. BYDUREON [Suspect]
     Indication: TYPE 2 DIABETES MELLITUS
     Dosage: FEB06-09MAR06?10MAR06-
     Route: 058
     Dates: start: 20060310
  2. ACTOS [Concomitant]
     Dosage: 30MG:2002-FEB06?45MG:FEB06-
     Route: 048
     Dates: start: 2002

REACTIONS (4)
  - Weight decreased [Unknown]
  - Constipation [Not Recovered/Not Resolved]
  - Dyspepsia [Not Recovered/Not Resolved]
  - Injection site mass [Unknown]
